FAERS Safety Report 7411268-1 (Version None)
Quarter: 2011Q2

REPORT INFORMATION
  Report Type: 
  Country: None (occurrence: None)
  Receive Date: 20110413
  Receipt Date: 20100507
  Transmission Date: 20111010
  Serious: No
  Sender: FDA-Public Use
  Company Number: US-BRISTOL-MYERS SQUIBB COMPANY-15096621

PATIENT
  Age: 5 Decade
  Sex: Female

DRUGS (3)
  1. FLUOROURACIL [Concomitant]
  2. ERBITUX [Suspect]
     Indication: COLON CANCER
     Route: 042
  3. OXALIPLATIN [Concomitant]

REACTIONS (2)
  - RASH PAPULAR [None]
  - BLISTER [None]
